FAERS Safety Report 8858777 (Version 1)
Quarter: 2012Q4

REPORT INFORMATION
  Report Type: Report from Study
  Country: CA (occurrence: CA)
  Receive Date: 20121024
  Receipt Date: 20121024
  Transmission Date: 20130627
  Serious: Yes (Hospitalization)
  Sender: FDA-Public Use
  Company Number: CA-JNJFOC-20121007390

PATIENT
  Age: 39 None
  Sex: Female

DRUGS (3)
  1. REMICADE [Suspect]
     Indication: CROHN^S DISEASE
     Route: 042
  2. IMURAN [Concomitant]
     Route: 065
  3. CITALOPRAM [Concomitant]
     Route: 065

REACTIONS (3)
  - Cholelithiasis [Unknown]
  - Crohn^s disease [Unknown]
  - Weight increased [Unknown]
